FAERS Safety Report 17719689 (Version 2)
Quarter: 2020Q2

REPORT INFORMATION
  Report Type: Spontaneous
  Country: CN (occurrence: CN)
  Receive Date: 20200428
  Receipt Date: 20200504
  Transmission Date: 20200714
  Serious: Yes (Hospitalization, Other)
  Sender: FDA-Public Use
  Company Number: CN-CELGENEUS-CHN-20200407777

PATIENT
  Age: 45 Year
  Sex: Female
  Weight: 77 kg

DRUGS (6)
  1. ETOCOXIB [Concomitant]
     Indication: PAIN
     Dosage: 60 MILLIGRAM
     Route: 048
  2. FLURBIPROFEN. [Concomitant]
     Active Substance: FLURBIPROFEN
     Indication: PRODUCT USED FOR UNKNOWN INDICATION
     Dosage: 80 MILLIGRAM
     Route: 061
  3. CYTARABINE. [Concomitant]
     Active Substance: CYTARABINE
     Indication: PRODUCT USED FOR UNKNOWN INDICATION
     Dosage: .2 GRAM
     Route: 041
  4. PIPERACILLIN AND TAZOBACTAM [Concomitant]
     Active Substance: PIPERACILLIN SODIUM\TAZOBACTAM SODIUM
     Indication: PNEUMONIA
     Dosage: 13.5 GRAM
     Route: 041
  5. STERILE WATER [Concomitant]
     Active Substance: WATER
     Indication: SOLVENT SENSITIVITY
     Dosage: 4 MILLILITER
     Route: 058
     Dates: start: 20200218
  6. VIDAZA [Suspect]
     Active Substance: AZACITIDINE
     Indication: MYELODYSPLASTIC SYNDROME
     Dosage: 2ML SUBCUTANEOUS INJECTION QD EACH
     Route: 058
     Dates: start: 20200218, end: 20200227

REACTIONS (5)
  - Wheezing [Recovering/Resolving]
  - Pericardial effusion [Unknown]
  - Pleural effusion [Unknown]
  - Chest discomfort [Recovering/Resolving]
  - Myalgia [Unknown]

NARRATIVE: CASE EVENT DATE: 20200228
